FAERS Safety Report 11566653 (Version 1)
Quarter: 2015Q3

REPORT INFORMATION
  Report Type: Spontaneous
  Country: US (occurrence: US)
  Receive Date: 20150916
  Receipt Date: 20150916
  Transmission Date: 20151125
  Serious: No
  Sender: FDA-Public Use
  Company Number: US-ELI_LILLY_AND_COMPANY-US200906004129

PATIENT
  Sex: Female

DRUGS (5)
  1. FORTEO [Suspect]
     Active Substance: TERIPARATIDE
     Dosage: UNK, UNK
     Dates: start: 20090602
  2. PROPOXYPHENE. [Concomitant]
     Active Substance: PROPOXYPHENE
     Indication: PAIN
     Dosage: 5 TIMES A DAY
  3. VITAMINS NOS [Concomitant]
     Active Substance: VITAMINS
  4. METHOCARBAMOL. [Concomitant]
     Active Substance: METHOCARBAMOL
  5. VITAMIN D [Concomitant]
     Active Substance: CHOLECALCIFEROL

REACTIONS (7)
  - Petechiae [Unknown]
  - Pain [Unknown]
  - Bradyphrenia [Unknown]
  - Dizziness [Unknown]
  - Vertigo [Unknown]
  - Rash papular [Unknown]
  - Rash pruritic [Recovered/Resolved]

NARRATIVE: CASE EVENT DATE: 200906
